FAERS Safety Report 17158857 (Version 1)
Quarter: 2019Q4

REPORT INFORMATION
  Report Type: Spontaneous
  Country: FR (occurrence: FR)
  Receive Date: 20191216
  Receipt Date: 20191216
  Transmission Date: 20200122
  Serious: Yes (Hospitalization)
  Sender: FDA-Public Use
  Company Number: FR-OTSUKA-2019_041282

PATIENT
  Age: 3 Year
  Sex: Female
  Weight: 13 kg

DRUGS (1)
  1. ABILIFY [Suspect]
     Active Substance: ARIPIPRAZOLE
     Indication: ACCIDENTAL POISONING
     Dosage: 1 DF, SINGLE
     Route: 048
     Dates: start: 20190609, end: 20190609

REACTIONS (4)
  - Product use in unapproved indication [Unknown]
  - Abdominal pain [Recovered/Resolved]
  - Dystonia [Recovering/Resolving]
  - Product administered to patient of inappropriate age [Unknown]

NARRATIVE: CASE EVENT DATE: 20190609
